FAERS Safety Report 24398747 (Version 4)
Quarter: 2025Q1

REPORT INFORMATION
  Report Type: Spontaneous
  Country: FR (occurrence: FR)
  Receive Date: 20241004
  Receipt Date: 20250228
  Transmission Date: 20250409
  Serious: Yes (Life-Threatening, Other)
  Sender: MYLAN
  Company Number: FR-UCBSA-2024048390

PATIENT
  Age: 40 Year
  Sex: Female

DRUGS (36)
  1. CETIRIZINE [Suspect]
     Active Substance: CETIRIZINE HYDROCHLORIDE
     Indication: Urticaria
  2. CETIRIZINE [Suspect]
     Active Substance: CETIRIZINE HYDROCHLORIDE
     Indication: Chronic spontaneous urticaria
     Route: 065
  3. CETIRIZINE [Suspect]
     Active Substance: CETIRIZINE HYDROCHLORIDE
     Indication: Asthma
     Route: 065
  4. CETIRIZINE [Suspect]
     Active Substance: CETIRIZINE HYDROCHLORIDE
  5. DESLORATADINE [Suspect]
     Active Substance: DESLORATADINE
     Indication: Urticaria
  6. DESLORATADINE [Suspect]
     Active Substance: DESLORATADINE
     Route: 065
  7. DESLORATADINE [Suspect]
     Active Substance: DESLORATADINE
     Route: 065
  8. DESLORATADINE [Suspect]
     Active Substance: DESLORATADINE
  9. EBASTINE [Suspect]
     Active Substance: EBASTINE
     Indication: Urticaria
  10. EBASTINE [Suspect]
     Active Substance: EBASTINE
     Indication: Chronic spontaneous urticaria
     Route: 065
  11. EBASTINE [Suspect]
     Active Substance: EBASTINE
     Route: 065
  12. EBASTINE [Suspect]
     Active Substance: EBASTINE
  13. HYDROXYZINE [Suspect]
     Active Substance: HYDROXYZINE HYDROCHLORIDE
     Indication: Urticaria
  14. HYDROXYZINE [Suspect]
     Active Substance: HYDROXYZINE HYDROCHLORIDE
     Indication: Chronic spontaneous urticaria
     Route: 065
  15. HYDROXYZINE [Suspect]
     Active Substance: HYDROXYZINE HYDROCHLORIDE
     Route: 065
  16. HYDROXYZINE [Suspect]
     Active Substance: HYDROXYZINE HYDROCHLORIDE
  17. LEVOCETIRIZINE [Suspect]
     Active Substance: LEVOCETIRIZINE
     Indication: Urticaria
  18. LEVOCETIRIZINE [Suspect]
     Active Substance: LEVOCETIRIZINE
     Indication: Asthma
     Route: 065
  19. LEVOCETIRIZINE [Suspect]
     Active Substance: LEVOCETIRIZINE
     Route: 065
  20. LEVOCETIRIZINE [Suspect]
     Active Substance: LEVOCETIRIZINE
  21. FEXOFENADINE [Suspect]
     Active Substance: FEXOFENADINE HYDROCHLORIDE
     Indication: Chronic spontaneous urticaria
  22. FEXOFENADINE [Suspect]
     Active Substance: FEXOFENADINE HYDROCHLORIDE
     Route: 065
  23. FEXOFENADINE [Suspect]
     Active Substance: FEXOFENADINE HYDROCHLORIDE
     Route: 065
  24. FEXOFENADINE [Suspect]
     Active Substance: FEXOFENADINE HYDROCHLORIDE
  25. LORATADINE [Suspect]
     Active Substance: LORATADINE
     Indication: Chronic spontaneous urticaria
  26. LORATADINE [Suspect]
     Active Substance: LORATADINE
     Route: 065
  27. LORATADINE [Suspect]
     Active Substance: LORATADINE
     Route: 065
  28. LORATADINE [Suspect]
     Active Substance: LORATADINE
  29. DEXCHLORPHENIRAMINE [Concomitant]
     Active Substance: DEXCHLORPHENIRAMINE
     Indication: Urticaria
  30. DEXCHLORPHENIRAMINE [Concomitant]
     Active Substance: DEXCHLORPHENIRAMINE
     Indication: Chronic spontaneous urticaria
     Route: 065
  31. DEXCHLORPHENIRAMINE [Concomitant]
     Active Substance: DEXCHLORPHENIRAMINE
     Route: 065
  32. DEXCHLORPHENIRAMINE [Concomitant]
     Active Substance: DEXCHLORPHENIRAMINE
  33. MIZOLASTINE [Concomitant]
     Active Substance: MIZOLASTINE
     Indication: Chronic spontaneous urticaria
  34. MIZOLASTINE [Concomitant]
     Active Substance: MIZOLASTINE
     Route: 065
  35. MIZOLASTINE [Concomitant]
     Active Substance: MIZOLASTINE
     Route: 065
  36. MIZOLASTINE [Concomitant]
     Active Substance: MIZOLASTINE

REACTIONS (5)
  - Anaphylactic reaction [Unknown]
  - Angioedema [Unknown]
  - Urticaria [Unknown]
  - Dyspnoea [Unknown]
  - Off label use [Unknown]
